FAERS Safety Report 17084810 (Version 3)
Quarter: 2020Q2

REPORT INFORMATION
  Report Type: Spontaneous
  Country: US (occurrence: US)
  Receive Date: 20191127
  Receipt Date: 20200608
  Transmission Date: 20200713
  Serious: No
  Sender: FDA-Public Use
  Company Number: US-ACTELION-A-US2019-198303

PATIENT
  Sex: Male

DRUGS (1)
  1. OPSUMIT [Suspect]
     Active Substance: MACITENTAN
     Indication: PULMONARY ARTERIAL HYPERTENSION
     Dosage: 10 MG, QD
     Route: 048
     Dates: start: 20180709

REACTIONS (6)
  - Vision blurred [Unknown]
  - Influenza [Not Recovered/Not Resolved]
  - Eye pruritus [Unknown]
  - Lacrimation increased [Unknown]
  - Seasonal allergy [Unknown]
  - Nasal congestion [Unknown]
